FAERS Safety Report 4887254-2 (Version None)
Quarter: 2005Q4

REPORT INFORMATION
  Report Type: 
  Country: None (occurrence: None)
  Receive Date: 20051221
  Receipt Date: 20051107
  Transmission Date: 20060501
  Serious: No
  Sender: FDA-Public Use
  Company Number: US-YAMANOUCHI-YPA20050577

PATIENT
  Age: 82 Year
  Sex: Female

DRUGS (3)
  1. VESICARE [Suspect]
     Dosage: 5 MG QD PO
     Route: 048
  2. VESICARE [Suspect]
     Dosage: 5 MG QD PO
     Route: 048
     Dates: start: 20051001, end: 20051104
  3. SYNTHROID [Concomitant]

REACTIONS (3)
  - EYE SWELLING [None]
  - SWELLING FACE [None]
  - SWOLLEN TONGUE [None]
